FAERS Safety Report 11177766 (Version 2)
Quarter: 2015Q2

REPORT INFORMATION
  Report Type: Report from Study
  Country: DE (occurrence: DE)
  Receive Date: 20150610
  Receipt Date: 20150625
  Transmission Date: 20150821
  Serious: Yes (Other)
  Sender: FDA-Public Use
  Company Number: DE-ABBVIE-15K-062-1388387-00

PATIENT
  Age: 53 Year
  Sex: Male
  Weight: 108 kg

DRUGS (1)
  1. HUMIRA [Suspect]
     Active Substance: ADALIMUMAB
     Indication: PSORIASIS
     Route: 058
     Dates: start: 20120214

REACTIONS (15)
  - Bullous lung disease [Unknown]
  - Pulmonary tuberculosis [Unknown]
  - Computerised tomogram thorax abnormal [Unknown]
  - Pulmonary toxicity [Unknown]
  - Bronchiolitis [Unknown]
  - Lymph node calcification [Unknown]
  - Mycobacterium tuberculosis complex test positive [Unknown]
  - Pulmonary hilar enlargement [Unknown]
  - Alveolitis [Unknown]
  - Pulmonary fibrosis [Unknown]
  - Hypertensive heart disease [Unknown]
  - Lung disorder [Unknown]
  - Spinal osteoarthritis [Not Recovered/Not Resolved]
  - Pulmonary mass [Unknown]
  - Inspiratory capacity decreased [Unknown]

NARRATIVE: CASE EVENT DATE: 20141001
